FAERS Safety Report 5036431-9 (Version None)
Quarter: 2006Q2

REPORT INFORMATION
  Report Type: 
  Country: None (occurrence: None)
  Receive Date: 20060628
  Receipt Date: 20060619
  Transmission Date: 20061013
  Serious: Yes (Life-Threatening)
  Sender: FDA-Public Use
  Company Number: ZA-JNJFOC-20060604295

PATIENT
  Sex: Female

DRUGS (5)
  1. REVELLEX [Suspect]
     Route: 042
  2. REVELLEX [Suspect]
     Indication: DRUG USE FOR UNKNOWN INDICATION
     Route: 042
  3. METHOTREXATE [Concomitant]
     Route: 065
  4. ARAVA [Concomitant]
     Route: 065
  5. PREDNISONE TAB [Concomitant]
     Route: 065

REACTIONS (1)
  - ATRIAL FLUTTER [None]
